FAERS Safety Report 15967014 (Version 1)
Quarter: 2019Q1

REPORT INFORMATION
  Report Type: Spontaneous
  Country: TW (occurrence: TW)
  Receive Date: 20190215
  Receipt Date: 20190215
  Transmission Date: 20190418
  Serious: Yes (Death)
  Sender: FDA-Public Use
  Company Number: TW-MYLANLABS-2019M1014025

PATIENT
  Age: 79 Year
  Sex: Female

DRUGS (3)
  1. PIPERACILLIN/TAZOBACTAM [Suspect]
     Active Substance: PIPERACILLIN SODIUM\TAZOBACTAM SODIUM
     Indication: ESCHERICHIA INFECTION
     Dosage: INITIALLY ADMINISTERED FOR 7 DAYS WITH GRADUAL IMPROVEMENT, THEN RE-INITIATED ON DECLINE IN CLINI...
     Route: 065
  2. PIPERACILLIN/TAZOBACTAM [Suspect]
     Active Substance: PIPERACILLIN SODIUM\TAZOBACTAM SODIUM
     Indication: URINARY TRACT INFECTION
  3. PIPERACILLIN/TAZOBACTAM [Suspect]
     Active Substance: PIPERACILLIN SODIUM\TAZOBACTAM SODIUM
     Indication: SEPSIS SYNDROME

REACTIONS (4)
  - Urinary tract infection [None]
  - Escherichia infection [None]
  - Drug ineffective [Fatal]
  - Device related infection [None]
